FAERS Safety Report 10243499 (Version 1)
Quarter: 2014Q2

REPORT INFORMATION
  Report Type: Spontaneous
  Country: US (occurrence: None)
  Receive Date: 20140616
  Receipt Date: 20140616
  Transmission Date: 20141212
  Serious: Yes (Disabling, Other)
  Sender: FDA-Public Use
  Company Number: None

PATIENT
  Age: 51 Year
  Sex: Female
  Weight: 49.9 kg

DRUGS (1)
  1. ZOMETA [Suspect]
     Indication: PLASMA CELL MYELOMA
     Dosage: 4 MG, ONE TIME IV, INTO A VEIN
     Route: 042
     Dates: start: 20140610, end: 20140610

REACTIONS (4)
  - Abasia [None]
  - Pain [None]
  - Dysstasia [None]
  - Asthenia [None]
